FAERS Safety Report 21976522 (Version 2)
Quarter: 2023Q1

REPORT INFORMATION
  Report Type: Report from Study
  Country: CA (occurrence: CA)
  Receive Date: 20230210
  Receipt Date: 20230223
  Transmission Date: 20230418
  Serious: Yes (Hospitalization)
  Sender: FDA-Public Use
  Company Number: CA-ABBVIE-4301588

PATIENT
  Age: 43 Year
  Sex: Female

DRUGS (1)
  1. RINVOQ [Suspect]
     Active Substance: UPADACITINIB
     Indication: Psoriatic arthropathy
     Route: 048
     Dates: start: 20221019

REACTIONS (4)
  - Pain in extremity [Recovered/Resolved]
  - C-reactive protein abnormal [Unknown]
  - Fibrin D dimer increased [Unknown]
  - Varicose vein [Unknown]

NARRATIVE: CASE EVENT DATE: 20230112
